FAERS Safety Report 7448828 (Version 3)
Quarter: 2013Q3

REPORT INFORMATION
  Report Type: Spontaneous
  Country: BR (occurrence: BR)
  Receive Date: 20100630
  Receipt Date: 20130724
  Transmission Date: 20140515
  Serious: Yes (Other)
  Sender: FDA-Public Use
  Company Number: BR-ROCHE-711265

PATIENT
  Age: 37 Year
  Sex: Female
  Weight: 61 kg

DRUGS (7)
  1. ROACUTAN [Suspect]
     Indication: ACNE
     Dosage: STRENGTH:10MG
     Route: 048
     Dates: start: 200908, end: 200910
  2. ROACUTAN [Suspect]
     Dosage: STRENGTH:20MG
     Route: 048
     Dates: start: 200910, end: 200911
  3. ROACUTAN [Suspect]
     Dosage: STRENGTH:10 MG
     Route: 048
     Dates: start: 200911, end: 20100513
  4. TYLENOL [Concomitant]
     Indication: SINUSITIS
     Dosage: FORM:TAB OR DROP
     Route: 048
  5. NIMESULIDE [Concomitant]
     Indication: SINUSITIS
     Dosage: SPORADICALLY
     Route: 065
  6. EUTHYROX [Concomitant]
     Indication: HYPOTHYROIDISM
     Dosage: FASTING
     Route: 048
     Dates: start: 1988, end: 201005
  7. EUTHYROX [Concomitant]
     Dosage: FASTING
     Route: 048

REACTIONS (3)
  - Premature separation of placenta [Unknown]
  - Exposure during pregnancy [Unknown]
  - No adverse event [Unknown]
